FAERS Safety Report 7934662-9 (Version None)
Quarter: 2011Q4

REPORT INFORMATION
  Report Type: 
  Country: None (occurrence: None)
  Receive Date: 20111122
  Receipt Date: 20111115
  Transmission Date: 20120403
  Serious: Yes (Hospitalization, Other)
  Sender: FDA-Public Use
  Company Number: US-MERCK-1105USA01173

PATIENT
  Age: 58 Year
  Sex: Female

DRUGS (6)
  1. ALENDRONATE SODIUM [Suspect]
     Route: 048
     Dates: start: 20070921
  2. FOSAMAX [Suspect]
     Indication: OSTEOPENIA
     Route: 048
     Dates: start: 20050101, end: 20080601
  3. ACTONEL [Concomitant]
     Indication: OSTEOPENIA
     Route: 048
     Dates: start: 20030101, end: 20050101
  4. CORTICOSTEROIDS (UNSPECIFIED) [Concomitant]
     Route: 065
     Dates: start: 19950101
  5. VITAMINS (UNSPECIFIED) [Concomitant]
     Route: 065
  6. HORMONES (UNSPECIFIED) [Concomitant]
     Route: 065
     Dates: start: 20040101, end: 20060101

REACTIONS (50)
  - BREAST CANCER [None]
  - LUMBAR RADICULOPATHY [None]
  - ANXIETY [None]
  - NIGHT SWEATS [None]
  - SOCIAL AVOIDANT BEHAVIOUR [None]
  - BONE LOSS [None]
  - SPONDYLOLISTHESIS [None]
  - FRACTURE MALUNION [None]
  - MASS [None]
  - OSTEOARTHRITIS [None]
  - VITAMIN D DECREASED [None]
  - VISUAL IMPAIRMENT [None]
  - PAIN IN EXTREMITY [None]
  - STRESS [None]
  - FOOT FRACTURE [None]
  - HOT FLUSH [None]
  - PATELLOFEMORAL PAIN SYNDROME [None]
  - BACK PAIN [None]
  - DRUG HYPERSENSITIVITY [None]
  - FEMUR FRACTURE [None]
  - CHONDROPATHY [None]
  - DECREASED APPETITE [None]
  - PREMATURE AGEING [None]
  - NEURALGIA [None]
  - BLOOD CALCIUM DECREASED [None]
  - INTERVERTEBRAL DISC DISORDER [None]
  - LUMBAR SPINAL STENOSIS [None]
  - STRESS FRACTURE [None]
  - RADIUS FRACTURE [None]
  - SENSORY DISTURBANCE [None]
  - PORPHYRIA NON-ACUTE [None]
  - ALOPECIA [None]
  - HAEMATOMA [None]
  - TENDON RUPTURE [None]
  - ACUTE SINUSITIS [None]
  - BONE DISORDER [None]
  - POST-TRAUMATIC STRESS DISORDER [None]
  - RADICULITIS LUMBOSACRAL [None]
  - NEUROPATHY PERIPHERAL [None]
  - WEIGHT INCREASED [None]
  - FALL [None]
  - HERPES ZOSTER [None]
  - ARNOLD-CHIARI MALFORMATION [None]
  - MENISCUS LESION [None]
  - DEPRESSION [None]
  - NEURITIS [None]
  - VARICOSE VEIN [None]
  - LACRIMATION DECREASED [None]
  - SPONDYLITIS [None]
  - ANKLE FRACTURE [None]
